FAERS Safety Report 13788881 (Version 3)
Quarter: 2020Q3

REPORT INFORMATION
  Report Type: Report from Study
  Country: KR (occurrence: KR)
  Receive Date: 20170725
  Receipt Date: 20170802
  Transmission Date: 20201104
  Serious: Yes (Life-Threatening, Hospitalization)
  Sender: FDA-Public Use
  Company Number: KR-ROCHE-1967953

PATIENT
  Age: 71 Year
  Sex: Male
  Weight: 79.2 kg

DRUGS (14)
  1. NAVOXIMOD. [Suspect]
     Active Substance: NAVOXIMOD
     Indication: NEOPLASM
     Dosage: ESCALATING DOSE?ON 21/JUN/2017, HE RECEIVED THE MOST RECENT DOSE 800 MG OF NAVOXIMOD PRIOR TO ONSET
     Route: 048
     Dates: start: 20170530
  2. BACLOFEN. [Concomitant]
     Active Substance: BACLOFEN
     Indication: MYALGIA
     Route: 048
     Dates: start: 20170726
  3. LEVOCETIRIZINE [Concomitant]
     Active Substance: LEVOCETIRIZINE
     Indication: RASH
     Route: 048
     Dates: start: 20170616, end: 20170626
  4. OXYCODON [Concomitant]
     Active Substance: OXYCODONE
     Indication: MYALGIA
     Route: 048
     Dates: start: 20170530
  5. NAPROXEN. [Concomitant]
     Active Substance: NAPROXEN
     Indication: PERICARDITIS
  6. METHYLPREDNISOLONE. [Concomitant]
     Active Substance: METHYLPREDNISOLONE
     Indication: RASH
     Route: 061
     Dates: start: 20170616, end: 20170626
  7. ALFUZOSIN HCL [Concomitant]
     Active Substance: ALFUZOSIN HYDROCHLORIDE
     Indication: BENIGN PROSTATIC HYPERPLASIA
     Route: 048
     Dates: start: 1997
  8. TELMISARTAN. [Concomitant]
     Active Substance: TELMISARTAN
     Indication: HYPERTENSION
     Route: 048
     Dates: start: 1987
  9. ACETAMINOPHEN. [Concomitant]
     Active Substance: ACETAMINOPHEN
     Indication: HEADACHE
     Route: 048
     Dates: start: 20170726
  10. ATEZOLIZUMAB. [Suspect]
     Active Substance: ATEZOLIZUMAB
     Indication: NEOPLASM
     Dosage: ON 13/JUL/2017, HE RECEIVED THE MOST RECENT DOSE OF ATEZOLIZUMAB PRIOR TO ONSET OF PERICARDIAL EFFUS
     Route: 042
     Dates: start: 20170531
  11. ATORVASTATIN CALCIUM. [Concomitant]
     Active Substance: ATORVASTATIN CALCIUM
     Indication: HYPERLIPIDAEMIA
     Dosage: ATORVASTATIN CALCIUM ANHYDROUS
     Route: 048
     Dates: start: 1987
  12. OXYCODON [Concomitant]
     Active Substance: OXYCODONE
     Indication: CHEST PAIN
  13. AZELASTINE. [Concomitant]
     Active Substance: AZELASTINE HYDROCHLORIDE
     Indication: RASH
     Route: 048
     Dates: start: 20170616, end: 20170626
  14. NAPROXEN. [Concomitant]
     Active Substance: NAPROXEN
     Indication: CHEST PAIN
     Route: 048
     Dates: start: 20170724

REACTIONS (1)
  - Pericardial effusion [Recovered/Resolved]

NARRATIVE: CASE EVENT DATE: 20170722
